FAERS Safety Report 7091361-6 (Version None)
Quarter: 2010Q4

REPORT INFORMATION
  Report Type: 
  Country: None (occurrence: None)
  Receive Date: 20101109
  Receipt Date: 20101104
  Transmission Date: 20110411
  Serious: Yes (Hospitalization)
  Sender: FDA-Public Use
  Company Number: A0875578A

PATIENT
  Age: 67 Year
  Sex: Female

DRUGS (7)
  1. ADVAIR DISKUS 100/50 [Suspect]
     Indication: CHRONIC OBSTRUCTIVE PULMONARY DISEASE
     Dosage: 2PUFF TWICE PER DAY
     Route: 055
     Dates: start: 20030101
  2. CARDIZEM [Concomitant]
  3. LISINOPRIL [Concomitant]
  4. SINGULAIR [Concomitant]
  5. OXYBUTYN [Concomitant]
  6. UNSPECIFIED MEDICATION [Concomitant]
  7. UNSPECIFIED MEDICATION [Concomitant]

REACTIONS (3)
  - INTESTINAL OBSTRUCTION [None]
  - OVERDOSE [None]
  - PRODUCT QUALITY ISSUE [None]
